FAERS Safety Report 7412615-7 (Version None)
Quarter: 2011Q2

REPORT INFORMATION
  Report Type: 
  Country: None (occurrence: None)
  Receive Date: 20110413
  Receipt Date: 20110405
  Transmission Date: 20111010
  Serious: Yes (Disabling)
  Sender: FDA-Public Use
  Company Number: B0710826A

PATIENT
  Age: 57 Year
  Sex: Female

DRUGS (3)
  1. NIQUITIN [Suspect]
     Indication: SMOKING CESSATION THERAPY
     Dosage: 14MG PER DAY
     Route: 062
  2. SAGE [Concomitant]
  3. EVENING PRIMROSE OIL [Concomitant]

REACTIONS (5)
  - LOSS OF CONSCIOUSNESS [None]
  - DIARRHOEA [None]
  - VERTIGO [None]
  - DIZZINESS [None]
  - MALAISE [None]
